FAERS Safety Report 7726382-0 (Version None)
Quarter: 2011Q3

REPORT INFORMATION
  Report Type: 
  Country: None (occurrence: None)
  Receive Date: 20110902
  Receipt Date: 20110825
  Transmission Date: 20111222
  Serious: Yes (Death)
  Sender: FDA-Public Use
  Company Number: FR-MILLENNIUM PHARMACEUTICALS, INC.-2011-03800

PATIENT

DRUGS (5)
  1. DEXAMETHASONE [Suspect]
     Indication: MULTIPLE MYELOMA
     Dosage: 20 MG, UNK
     Route: 048
     Dates: start: 20110808, end: 20110808
  2. LYTOS [Concomitant]
     Dosage: 520 MG, UNK
     Route: 048
     Dates: start: 20090307
  3. DURAGESIC-100 [Concomitant]
     Indication: BONE PAIN
     Dosage: UNK
     Dates: start: 20100404
  4. VELCADE [Suspect]
     Indication: MULTIPLE MYELOMA
     Dosage: 0.7 MG/M2, UNK
     Route: 042
     Dates: start: 20110808, end: 20110808
  5. BENDAMUSTINE [Suspect]
     Indication: MULTIPLE MYELOMA
     Dosage: 70 MG/M2, UNK
     Route: 042
     Dates: start: 20010808, end: 20110808

REACTIONS (1)
  - DIARRHOEA [None]
